FAERS Safety Report 6199550-X (Version None)
Quarter: 2009Q2

REPORT INFORMATION
  Report Type: 
  Country: None (occurrence: None)
  Receive Date: 20090522
  Receipt Date: 20090515
  Transmission Date: 20091009
  Serious: Yes (Hospitalization)
  Sender: FDA-Public Use
  Company Number: A0785620A

PATIENT
  Age: 58 Year
  Sex: Male
  Weight: 136.4 kg

DRUGS (3)
  1. AVANDIA [Suspect]
     Dosage: 2MG TWICE PER DAY
     Route: 048
     Dates: start: 20020210, end: 20070726
  2. AVANDAMET [Suspect]
     Route: 048
     Dates: start: 20060101, end: 20070210
  3. ASPIRIN [Concomitant]
     Dosage: 81MG PER DAY

REACTIONS (1)
  - CORONARY ARTERY OCCLUSION [None]
